FAERS Safety Report 16805223 (Version 1)
Quarter: 2019Q4

REPORT INFORMATION
  Report Type: Spontaneous
  Country: US (occurrence: US)
  Receive Date: 20190913
  Receipt Date: 20190913
  Transmission Date: 20200122
  Serious: No
  Sender: FDA-Public Use
  Company Number: None

PATIENT
  Age: 51 Year
  Sex: Female
  Weight: 62.1 kg

DRUGS (3)
  1. SYNTHROID [Concomitant]
     Active Substance: LEVOTHYROXINE SODIUM
  2. VIT D [Concomitant]
     Active Substance: VITAMIN D NOS
  3. CLYNDAMYCIN HCL 300 [Suspect]
     Active Substance: CLINDAMYCIN HYDROCHLORIDE
     Indication: SINUSITIS
     Dosage: ?          QUANTITY:30 CAPSULE(S);OTHER FREQUENCY:EVERY 6 HOURS;?
     Route: 048
     Dates: start: 20190725, end: 20190807

REACTIONS (9)
  - Hypoaesthesia oral [None]
  - Rash pruritic [None]
  - Paraesthesia oral [None]
  - Clostridium difficile infection [None]
  - Urticaria [None]
  - Feeding disorder [None]
  - Hypoaesthesia [None]
  - Diarrhoea [None]
  - Paraesthesia [None]

NARRATIVE: CASE EVENT DATE: 20190807
